FAERS Safety Report 5796107-7 (Version None)
Quarter: 2008Q3

REPORT INFORMATION
  Report Type: 
  Country: None (occurrence: None)
  Receive Date: 20080701
  Receipt Date: 20080626
  Transmission Date: 20090109
  Serious: Yes (Hospitalization)
  Sender: FDA-Public Use
  Company Number: ES-BRISTOL-MYERS SQUIBB COMPANY-14241939

PATIENT
  Age: 71 Year
  Sex: Female

DRUGS (6)
  1. SINEMET CR [Suspect]
     Indication: PARKINSON'S DISEASE
     Route: 048
     Dates: start: 20070101, end: 20071008
  2. DICLOFENAC SODIUM [Suspect]
     Indication: BACK PAIN
     Dates: start: 20070801, end: 20071006
  3. IBUROFEN [Suspect]
     Indication: BACK PAIN
     Route: 048
     Dates: start: 20070801, end: 20071008
  4. MYOLASTAN [Suspect]
     Indication: PARKINSON'S DISEASE
     Dosage: 30 COATED TABLETS
     Route: 048
     Dates: start: 20070101, end: 20071008
  5. NOLOTIL [Suspect]
     Indication: BACK PAIN
     Dosage: 10 CAPSULES
     Route: 048
     Dates: start: 20070801, end: 20071006
  6. TRILEPTAL [Suspect]
     Indication: PARKINSON'S DISEASE
     Dosage: 50 COATED TABLETS
     Route: 048
     Dates: start: 20070101, end: 20071008

REACTIONS (2)
  - HEPATITIS TOXIC [None]
  - TOXIC EPIDERMAL NECROLYSIS [None]
